FAERS Safety Report 8032374-7 (Version None)
Quarter: 2011Q4

REPORT INFORMATION
  Report Type: 
  Country: None (occurrence: None)
  Receive Date: 20111202
  Receipt Date: 20110607
  Transmission Date: 20120403
  Serious: Yes (Life-Threatening, Hospitalization)
  Sender: FDA-Public Use
  Company Number: 2011SP026385

PATIENT
  Age: 40 Year
  Sex: Female

DRUGS (3)
  1. NUVARING [Suspect]
     Indication: MENOMETRORRHAGIA
     Dosage: 0.120 MG;QM;VAG
     Route: 067
     Dates: start: 20101227, end: 20110217
  2. NUVARING [Suspect]
     Indication: MENSTRUAL DISORDER
     Dosage: 0.120 MG;QM;VAG
     Route: 067
     Dates: start: 20101227, end: 20110217
  3. ZOLOFT [Concomitant]

REACTIONS (1)
  - PULMONARY EMBOLISM [None]
